FAERS Safety Report 21475209 (Version 6)
Quarter: 2023Q2

REPORT INFORMATION
  Report Type: Other
  Country: JP (occurrence: JP)
  Receive Date: 20221019
  Receipt Date: 20230406
  Transmission Date: 20230721
  Serious: Yes (Hospitalization, Other)
  Sender: FDA-Public Use
  Company Number: JP-CHUGAI-2022005028

PATIENT
  Age: 68 Year
  Sex: Male
  Weight: 71.2 kg

DRUGS (4)
  1. ATEZOLIZUMAB [Suspect]
     Active Substance: ATEZOLIZUMAB
     Indication: Hepatocellular carcinoma
     Route: 041
     Dates: start: 20210811, end: 20220225
  2. BEVACIZUMAB [Suspect]
     Active Substance: BEVACIZUMAB
     Indication: Hepatocellular carcinoma
     Dosage: 1050 MILLIGRAM, ONCE/3WEEKS
     Route: 041
     Dates: start: 20210811
  3. BEVACIZUMAB [Suspect]
     Active Substance: BEVACIZUMAB
     Dosage: 1050 MILLIGRAM, ONCE/3WEEKS
     Route: 041
     Dates: start: 20220318, end: 20221021
  4. CYCLOSPORINE [Concomitant]
     Active Substance: CYCLOSPORINE
     Indication: Psoriasis
     Dosage: UNK
     Route: 065

REACTIONS (3)
  - Pneumonia bacterial [Not Recovered/Not Resolved]
  - Hypophysitis [Not Recovered/Not Resolved]
  - Oedema peripheral [Not Recovered/Not Resolved]

NARRATIVE: CASE EVENT DATE: 20220318
